FAERS Safety Report 24311261 (Version 1)
Quarter: 2024Q3

REPORT INFORMATION
  Report Type: Spontaneous
  Country: US (occurrence: US)
  Receive Date: 20240912
  Receipt Date: 20240912
  Transmission Date: 20241017
  Serious: No
  Sender: PAREXEL
  Company Number: US-NOVEN PHARMACEUTICALS, INC.-2024-NOV-US000504

PATIENT
  Sex: Female

DRUGS (2)
  1. COMBIPATCH [Suspect]
     Active Substance: ESTRADIOL\NORETHINDRONE ACETATE
     Indication: Menopausal symptoms
     Dosage: 0.05/0.14 MG, EVERY SUNDAYS AND WEDNESDAY
     Route: 062
  2. COMBIPATCH [Suspect]
     Active Substance: ESTRADIOL\NORETHINDRONE ACETATE
     Indication: Off label use

REACTIONS (13)
  - Application site burn [Unknown]
  - Application site erythema [Not Recovered/Not Resolved]
  - Application site pruritus [Recovered/Resolved]
  - Application site bruise [Recovering/Resolving]
  - Application site discolouration [Not Recovered/Not Resolved]
  - Application site irritation [Not Recovered/Not Resolved]
  - Discomfort [Unknown]
  - Application site dryness [Recovering/Resolving]
  - Product administered at inappropriate site [Recovered/Resolved]
  - Product storage error [Recovered/Resolved]
  - Product administration error [Recovered/Resolved]
  - Product residue present [Not Recovered/Not Resolved]
  - Off label use [Not Recovered/Not Resolved]

NARRATIVE: CASE EVENT DATE: 20240101
